FAERS Safety Report 21928573 (Version 1)
Quarter: 2023Q1

REPORT INFORMATION
  Report Type: Spontaneous
  Country: US (occurrence: US)
  Receive Date: 20230130
  Receipt Date: 20230130
  Transmission Date: 20230417
  Serious: No
  Sender: FDA-Public Use
  Company Number: US-drreddys-SPO/USA/23/0159711

PATIENT
  Age: 39 Year
  Sex: Female

DRUGS (4)
  1. LENALIDOMIDE [Suspect]
     Active Substance: LENALIDOMIDE
     Indication: Plasma cell myeloma
     Dosage: ON DAYS 1-21 OF 28 DAY CYCLE
     Route: 048
     Dates: start: 20221127
  2. ASPIRIN 81 CHE 81MG [Concomitant]
     Indication: Product used for unknown indication
     Dosage: CHE
  3. CYANOCOBALAM SOL 1000MCG/ [Concomitant]
     Indication: Product used for unknown indication
  4. DEXAMETHASONE [Concomitant]
     Active Substance: DEXAMETHASONE
     Indication: Product used for unknown indication

REACTIONS (2)
  - Neuralgia [Not Recovered/Not Resolved]
  - Pruritus [Recovered/Resolved]
